FAERS Safety Report 6383903-0 (Version None)
Quarter: 2009Q4

REPORT INFORMATION
  Report Type: 
  Country: None (occurrence: None)
  Receive Date: 20091001
  Receipt Date: 20090921
  Transmission Date: 20100525
  Serious: Yes (Death)
  Sender: FDA-Public Use
  Company Number: FR-AVENTIS-200913513FR

PATIENT
  Age: 94 Year
  Sex: Female

DRUGS (15)
  1. LASILIX RETARD [Suspect]
     Indication: DRUG USE FOR UNKNOWN INDICATION
     Route: 048
     Dates: start: 20090522
  2. ACUPAN [Suspect]
     Indication: DRUG USE FOR UNKNOWN INDICATION
     Route: 048
     Dates: start: 20090518, end: 20090526
  3. LAMALINE                           /00764901/ [Suspect]
     Indication: DRUG USE FOR UNKNOWN INDICATION
     Route: 048
     Dates: start: 20090522, end: 20090526
  4. AMOXICILLINE / CLAVULANIC ACID [Suspect]
     Indication: DRUG USE FOR UNKNOWN INDICATION
     Dates: start: 20090518, end: 20090528
  5. CORDARONE [Concomitant]
  6. DEPAMIDE [Concomitant]
  7. HALDOL FORT [Concomitant]
  8. PREVISCAN                          /00789001/ [Concomitant]
  9. SPASFON                            /00934601/ [Concomitant]
  10. ZOPICLONE [Concomitant]
  11. LYRICA [Concomitant]
  12. ALBUTEROL [Concomitant]
  13. IPRATROPIUM [Concomitant]
  14. FORLAX [Concomitant]
  15. DIFFU K [Concomitant]

REACTIONS (2)
  - ABDOMINAL PAIN [None]
  - FAECAL VOMITING [None]
